FAERS Safety Report 12467323 (Version 1)
Quarter: 2016Q2

REPORT INFORMATION
  Report Type: Spontaneous
  Country: US (occurrence: None)
  Receive Date: 20160614
  Receipt Date: 20160614
  Transmission Date: 20160815
  Serious: Yes (Life-Threatening)
  Sender: FDA-Public Use
  Company Number: None

PATIENT
  Age: 62 Year
  Sex: Female
  Weight: 54.43 kg

DRUGS (13)
  1. LAMOTRIGINE. [Concomitant]
     Active Substance: LAMOTRIGINE
  2. CALCIUM PLUS VITS D AND K [Concomitant]
  3. FOLIC ACID. [Concomitant]
     Active Substance: FOLIC ACID
  4. VITAMIN B12 [Concomitant]
     Active Substance: CYANOCOBALAMIN
  5. PREDNISONE. [Concomitant]
     Active Substance: PREDNISONE
  6. GABAPENTIN. [Concomitant]
     Active Substance: GABAPENTIN
  7. TEMAZEPAM (OR DOXYLAMINE) [Concomitant]
  8. LEUCOVORIN. [Concomitant]
     Active Substance: LEUCOVORIN
  9. MELATONIN [Concomitant]
     Active Substance: MELATONIN
  10. DOMPERIDONE, GENERIC, 10 MG PHARMASCIENCE [Suspect]
     Active Substance: DOMPERIDONE
     Indication: IMPAIRED GASTRIC EMPTYING
     Route: 048
     Dates: start: 20111001, end: 20160607
  11. METHOTREXATE [Concomitant]
     Active Substance: METHOTREXATE
  12. MULTI-VITAMIN [Concomitant]
     Active Substance: .ALPHA.-TOCOPHEROL ACETATE, DL-\ASCORBIC ACID\CYANOCOBALAMIN\FLUORIDE ION\FOLIC ACID\NIACIN\PYRIDOXINE\RIBOFLAVIN\THIAMINE\VITAMIN A\VITAMIN D
  13. VIT B COMPLEX [Concomitant]

REACTIONS (1)
  - Electrocardiogram QT prolonged [None]

NARRATIVE: CASE EVENT DATE: 20160606
